FAERS Safety Report 7266643-5 (Version None)
Quarter: 2011Q1

REPORT INFORMATION
  Report Type: 
  Country: None (occurrence: None)
  Receive Date: 20110131
  Receipt Date: 20110118
  Transmission Date: 20110831
  Serious: Yes (Hospitalization)
  Sender: FDA-Public Use
  Company Number: US-MYLANLABS-2011S1001405

PATIENT
  Age: 85 Year
  Sex: Male

DRUGS (17)
  1. CHLORPROMAZINE [Concomitant]
     Dosage: 10MG IN THE MORNING AND 20MG IN THE EVENING
     Route: 048
  2. LIDOCAINE [Concomitant]
     Dosage: APPLIED TO THE SKIN FOR 12 HOURS DAILY
     Route: 062
  3. METFORMIN [Concomitant]
     Route: 048
  4. DICLOFENAC [Concomitant]
     Indication: OSTEOARTHRITIS
     Route: 061
  5. DICLOFENAC [Concomitant]
     Indication: ARTHRALGIA
     Route: 061
  6. FINASTERIDE [Concomitant]
     Route: 048
  7. OMEPRAZOLE [Concomitant]
     Route: 048
  8. PRAMIPEXOLE DIHYDROCHLORIDE [Concomitant]
     Route: 048
  9. THEOPHYLLINE [Concomitant]
     Route: 048
  10. PROCET                             /01554201/ [Concomitant]
     Route: 065
  11. TIZANIDINE [Suspect]
     Indication: BACK PAIN
     Route: 048
  12. LISINOPRIL [Interacting]
     Route: 048
  13. ACETAMINOPHEN [Concomitant]
     Route: 065
  14. CITALOPRAM HYDROBROMIDE [Concomitant]
     Route: 048
  15. SIMVASTATIN [Concomitant]
     Dosage: AT BEDTIME
     Route: 048
  16. CHERATUSSIN AC [Concomitant]
     Route: 048
  17. ONDANSETRON [Concomitant]
     Route: 065

REACTIONS (3)
  - HYPOTENSION [None]
  - BRADYCARDIA [None]
  - DRUG INTERACTION [None]
